FAERS Safety Report 4824808-3 (Version None)
Quarter: 2005Q4

REPORT INFORMATION
  Report Type: 
  Country: None (occurrence: None)
  Receive Date: 20051014
  Receipt Date: 20050812
  Transmission Date: 20060501
  Serious: No
  Sender: FDA-Public Use
  Company Number: 2005SP002340

PATIENT
  Age: 63 Year
  Sex: Female
  Weight: 52.6173 kg

DRUGS (2)
  1. LUNESTA [Suspect]
     Dosage: 2 MG;HS;ORAL, 1 MG;HS;ORAL
     Route: 048
     Dates: start: 20050810, end: 20050801
  2. LUNESTA [Suspect]
     Dosage: 2 MG;HS;ORAL, 1 MG;HS;ORAL
     Route: 048
     Dates: start: 20050801

REACTIONS (1)
  - HANGOVER [None]
